FAERS Safety Report 9256513 (Version 2)
Quarter: 2014Q1

REPORT INFORMATION
  Report Type: Report from Study
  Country: DE (occurrence: DE)
  Receive Date: 20130426
  Receipt Date: 20140124
  Transmission Date: 20141002
  Serious: Yes (Death, Hospitalization, Other)
  Sender: FDA-Public Use
  Company Number: DE-ROCHE-1217629

PATIENT
  Sex: 0

DRUGS (1)
  1. VALGANCICLOVIR [Suspect]
     Indication: ANTIVIRAL PROPHYLAXIS
     Route: 065

REACTIONS (7)
  - Death [Fatal]
  - Transplant failure [Unknown]
  - Leukopenia [Unknown]
  - Cytomegalovirus infection [Unknown]
  - Underdose [Unknown]
  - Overdose [Unknown]
  - Neutropenia [Unknown]
